FAERS Safety Report 6244161-0 (Version None)
Quarter: 2009Q2

REPORT INFORMATION
  Report Type: 
  Country: None (occurrence: None)
  Receive Date: 20090625
  Receipt Date: 20090622
  Transmission Date: 20091009
  Serious: Yes (Other)
  Sender: FDA-Public Use
  Company Number: US-BAYER-200916400NA

PATIENT
  Age: 70 Year
  Sex: Male

DRUGS (3)
  1. LEVITRA [Suspect]
     Indication: DRUG USE FOR UNKNOWN INDICATION
     Dates: end: 20090101
  2. LEVITRA [Suspect]
     Dates: end: 20070101
  3. LIPITOR [Concomitant]

REACTIONS (5)
  - CATARACT [None]
  - DRY EYE [None]
  - MYODESOPSIA [None]
  - PHOTOPSIA [None]
  - VITREOUS DETACHMENT [None]
